FAERS Safety Report 11339756 (Version 1)
Quarter: 2015Q3

REPORT INFORMATION
  Report Type: Spontaneous
  Country: ES (occurrence: None)
  Receive Date: 20150803
  Receipt Date: 20150803
  Transmission Date: 20151125
  Serious: Yes (Hospitalization)
  Sender: FDA-Public Use
  Company Number: IPC201507-000490

PATIENT
  Age: 49 Year
  Sex: Male

DRUGS (5)
  1. METRONIDAZOLE (METRONIDAZOLE) (METRONIDAZOLE) [Suspect]
     Active Substance: METRONIDAZOLE
     Route: 042
  2. IRON [Concomitant]
     Active Substance: IRON
  3. PIPERACILINA/TOZABACTUM (PIPERACILINA/TOZABACTUM) (PIPERACILINA/ TOZABACTUM) [Suspect]
     Active Substance: PIPERACILLIN SODIUM\TAZOBACTAM SODIUM
     Route: 042
  4. AZATHIOPHRINE [Concomitant]
  5. WARFARIN (WARFARIN) (WARFARIN) [Suspect]
     Active Substance: WARFARIN
     Indication: VENOUS THROMBOSIS LIMB

REACTIONS (11)
  - Shock [None]
  - Lethargy [None]
  - Drug interaction [None]
  - Haematocrit decreased [None]
  - Tachycardia [None]
  - International normalised ratio increased [None]
  - Retroperitoneal haematoma [None]
  - Hypotension [None]
  - Haemodynamic instability [None]
  - Haemoglobin decreased [None]
  - White blood cell count increased [None]
